FAERS Safety Report 7208281-6 (Version None)
Quarter: 2010Q4

REPORT INFORMATION
  Report Type: 
  Country: None (occurrence: None)
  Receive Date: 20101126
  Receipt Date: 20100830
  Transmission Date: 20110411
  Serious: Yes (Other)
  Sender: FDA-Public Use
  Company Number: 313113

PATIENT
  Age: 52 Year
  Sex: Male
  Weight: 135.1 kg

DRUGS (12)
  1. VICTOZA [Suspect]
     Indication: DIABETES MELLITUS
     Dosage: 0.6 MG, QD X 1 WEEK, SUBCUTANEOUS ; 1.2 MG, QD, SUBCUTANEOUS
     Route: 058
     Dates: start: 20100401, end: 20100401
  2. VICTOZA [Suspect]
     Indication: DIABETES MELLITUS
     Dosage: 0.6 MG, QD X 1 WEEK, SUBCUTANEOUS ; 1.2 MG, QD, SUBCUTANEOUS
     Route: 058
     Dates: start: 20100401, end: 20100713
  3. MULITIVITAMINS (ASCORBIC ACID, ERGOCALCIFEROL, FOLIC ACID, NICOTINAMMI [Concomitant]
  4. ASPIRIN [Concomitant]
  5. FISH OIL (FISH OIL) [Concomitant]
  6. FUROSEMIDE [Concomitant]
  7. PRAVASTATIN SODIUM [Concomitant]
  8. ISOSORBIDE MONONITRATE [Concomitant]
  9. METFORMIN (METFORMIN) [Concomitant]
  10. LISINOPRIL [Concomitant]
  11. GLIPIZIDE [Concomitant]
  12. UROXATRAL [Concomitant]

REACTIONS (1)
  - PANCREATITIS ACUTE [None]
